FAERS Safety Report 6085920-7 (Version None)
Quarter: 2009Q1

REPORT INFORMATION
  Report Type: 
  Country: None (occurrence: None)
  Receive Date: 20090217
  Receipt Date: 20090217
  Transmission Date: 20090719
  Serious: Yes (Other)
  Sender: FDA-Public Use
  Company Number: None

PATIENT
  Age: 47 Year
  Sex: Female
  Weight: 71.6683 kg

DRUGS (3)
  1. SERTRALINE [Suspect]
     Indication: ANXIETY
     Dosage: 2 TABLETS DAILY PO
     Route: 048
  2. SERTRALINE [Suspect]
     Indication: DEPRESSION
     Dosage: 2 TABLETS DAILY PO
     Route: 048
  3. SERTRALINE [Suspect]
     Indication: PANIC DISORDER
     Dosage: 2 TABLETS DAILY PO
     Route: 048

REACTIONS (3)
  - FOOT DEFORMITY [None]
  - INCONTINENCE [None]
  - MUSCLE SPASMS [None]
